FAERS Safety Report 13821176 (Version 1)
Quarter: 2017Q3

REPORT INFORMATION
  Report Type: Spontaneous
  Country: NZ (occurrence: NZ)
  Receive Date: 20170801
  Receipt Date: 20170801
  Transmission Date: 20171127
  Serious: Yes (Other)
  Sender: FDA-Public Use
  Company Number: NZ-ALEMBIC PHARMACUETICALS LIMITED-2017SCAL000596

PATIENT

DRUGS (8)
  1. NORTRIPTYLINE [Concomitant]
     Active Substance: NORTRIPTYLINE
     Indication: BIPOLAR DISORDER
     Dosage: 150 MG, QD
  2. NORTRIPTYLINE [Concomitant]
     Active Substance: NORTRIPTYLINE
     Indication: MAJOR DEPRESSION
  3. LAMOTRIGINE. [Suspect]
     Active Substance: LAMOTRIGINE
     Indication: MAJOR DEPRESSION
  4. LAMOTRIGINE. [Suspect]
     Active Substance: LAMOTRIGINE
     Indication: BIPOLAR DISORDER
     Dosage: UNK
  5. QUETIAPINE FUMARATE. [Suspect]
     Active Substance: QUETIAPINE FUMARATE
     Indication: MAJOR DEPRESSION
  6. THYROXINE [Concomitant]
     Active Substance: LEVOTHYROXINE
     Indication: HYPOTHYROIDISM
  7. ENALAPRIL [Concomitant]
     Active Substance: ENALAPRIL
     Indication: HYPERTENSION
  8. QUETIAPINE FUMARATE. [Suspect]
     Active Substance: QUETIAPINE FUMARATE
     Indication: BIPOLAR DISORDER
     Dosage: 50-100 MG/DAY

REACTIONS (9)
  - Tachyphrenia [Recovering/Resolving]
  - Pre-eclampsia [Unknown]
  - Foetal growth restriction [Unknown]
  - Maternal exposure during pregnancy [Unknown]
  - Premature baby [Unknown]
  - Breech presentation [Unknown]
  - Gestational diabetes [Unknown]
  - Poor quality sleep [Recovering/Resolving]
  - Gestational hypertension [Unknown]
